FAERS Safety Report 4980319-6 (Version None)
Quarter: 2006Q2

REPORT INFORMATION
  Report Type: 
  Country: None (occurrence: None)
  Receive Date: 20060421
  Receipt Date: 20060421
  Transmission Date: 20061013
  Serious: Yes (Other)
  Sender: FDA-Public Use
  Company Number: None

PATIENT
  Age: 67 Year
  Sex: Male

DRUGS (1)
  1. VIAGRA [Suspect]
     Indication: ERECTILE DYSFUNCTION
     Dosage: TAKE 1 TABLET AS DIRECTED

REACTIONS (3)
  - DRUG INEFFECTIVE [None]
  - NO REACTION ON PREVIOUS EXPOSURE TO DRUG [None]
  - PHARMACEUTICAL PRODUCT COMPLAINT [None]
